FAERS Safety Report 21878781 (Version 8)
Quarter: 2023Q4

REPORT INFORMATION
  Report Type: Spontaneous
  Country: IN (occurrence: IN)
  Receive Date: 20230118
  Receipt Date: 20231019
  Transmission Date: 20240110
  Serious: Yes (Other)
  Sender: FDA-Public Use
  Company Number: IN-PFIZER INC-PV202200002323

PATIENT
  Age: 52 Year
  Sex: Female
  Weight: 75 kg

DRUGS (2)
  1. PALBOCICLIB [Suspect]
     Active Substance: PALBOCICLIB
     Indication: Breast cancer metastatic
     Dosage: 125 MG, CYCLIC (OD FOR 21DAYS, Q 28 DAYS)
     Route: 048
     Dates: start: 202202
  2. PALBOCICLIB [Suspect]
     Active Substance: PALBOCICLIB
     Dosage: 100 MG, CYCLIC (OD, FOR 21 DAYS)
     Route: 048

REACTIONS (15)
  - Blood pressure increased [Unknown]
  - Gastrointestinal disorder [Unknown]
  - Pallor [Unknown]
  - Heart rate increased [Unknown]
  - Pain [Unknown]
  - Eastern Cooperative Oncology Group performance status worsened [Unknown]
  - Weight decreased [Unknown]
  - Groin pain [Unknown]
  - Vomiting [Unknown]
  - Platelet count decreased [Unknown]
  - White blood cell count decreased [Unknown]
  - Haemoglobin decreased [Unknown]
  - Pyrexia [Unknown]
  - Decreased appetite [Unknown]
  - Nausea [Unknown]

NARRATIVE: CASE EVENT DATE: 20220101
